FAERS Safety Report 26170880 (Version 1)
Quarter: 2025Q4

REPORT INFORMATION
  Report Type: Spontaneous
  Country: US (occurrence: US)
  Receive Date: 20251217
  Receipt Date: 20251217
  Transmission Date: 20260117
  Serious: Yes (Hospitalization, Other)
  Sender: PFIZER
  Company Number: US-AMGEN-USASP2025243211

PATIENT
  Age: 75 Year
  Sex: Female

DRUGS (2)
  1. ETANERCEPT [Suspect]
     Active Substance: ETANERCEPT
     Indication: Rheumatoid arthritis
     Dosage: UNK
     Route: 065
  2. METHOTREXATE [Suspect]
     Active Substance: METHOTREXATE
     Indication: Rheumatoid arthritis
     Dosage: UNK
     Route: 065

REACTIONS (17)
  - Influenza like illness [Recovered/Resolved]
  - Jaundice [Recovered/Resolved]
  - Tachyarrhythmia [Recovered/Resolved]
  - Haematochezia [Recovered/Resolved]
  - Tachycardia [Recovered/Resolved]
  - Respiratory failure [Recovered/Resolved]
  - Leukocytosis [Recovered/Resolved]
  - Hypotension [Recovered/Resolved]
  - Leptospirosis [Recovered/Resolved]
  - Acute kidney injury [Recovered/Resolved]
  - Renal failure [Recovered/Resolved]
  - Hypoxia [Recovered/Resolved]
  - Condition aggravated [Recovered/Resolved]
  - Condition aggravated [Recovered/Resolved]
  - Anaemia [Recovered/Resolved]
  - Thrombocytopenia [Recovered/Resolved]
  - Pneumonia [Recovered/Resolved]
